FAERS Safety Report 7286439-8 (Version None)
Quarter: 2011Q1

REPORT INFORMATION
  Report Type: 
  Country: None (occurrence: None)
  Receive Date: 20110131
  Receipt Date: 20110114
  Transmission Date: 20110831
  Serious: Yes (Death)
  Sender: FDA-Public Use
  Company Number: 1000018455

PATIENT
  Age: 38 Year
  Sex: Male

DRUGS (15)
  1. BENZODIAZEPINE (BENZODIAZEPINE) [Suspect]
  2. ESZOPICLONE [Suspect]
  3. CYCLOBENZAPRINE [Suspect]
  4. METHYLERGONOVINE MALEATE [Suspect]
  5. PAROXETINE HCL [Suspect]
  6. QUETIAPINE FUMARATE [Suspect]
  7. BETA BLOCKER (BETA BLOCKER)` [Suspect]
  8. CITALOPRAM HYDROBROMIDE [Suspect]
  9. VERAPAMIL [Suspect]
  10. VALPROIC ACID [Suspect]
  11. ZOLPIDEM [Suspect]
  12. PHENYTOIN [Suspect]
  13. ACETAMINOPHEN [Suspect]
  14. ACETAMINOPHEN/ DICHLORALPHENAZONE/ ISOMETHEPTENE(ACETAMINOPHEN/  DICHL [Suspect]
  15. PROCHLORPERAZINE MALEATE [Suspect]

REACTIONS (4)
  - CARDIAC ARREST [None]
  - RESPIRATORY ARREST [None]
  - COMPLETED SUICIDE [None]
  - POISONING [None]
